FAERS Safety Report 5241433-3 (Version None)
Quarter: 2007Q1

REPORT INFORMATION
  Report Type: 
  Country: None (occurrence: None)
  Receive Date: 20070212
  Receipt Date: 20070212
  Transmission Date: 20070707
  Serious: Yes (Other)
  Sender: FDA-Public Use
  Company Number: None

PATIENT
  Age: 20 Year
  Sex: Male
  Weight: 86.1834 kg

DRUGS (4)
  1. CORICIDIN HBP COUGH + COLD [Suspect]
     Indication: DRUG USE FOR UNKNOWN INDICATION
     Dosage: 20 DF;PO
     Route: 048
  2. ALCOHOL [Concomitant]
  3. MARIJUANA [Concomitant]
  4. GUAIFENESIN [Concomitant]

REACTIONS (11)
  - ALCOHOL USE [None]
  - DRUG DEPENDENCE [None]
  - DYSPEPSIA [None]
  - EATING DISORDER [None]
  - HYPERSENSITIVITY [None]
  - INCORRECT DOSE ADMINISTERED [None]
  - INSOMNIA [None]
  - INTENTIONAL DRUG MISUSE [None]
  - RESTLESSNESS [None]
  - SOMNOLENCE [None]
  - THEFT [None]
